FAERS Safety Report 17326136 (Version 1)
Quarter: 2020Q1

REPORT INFORMATION
  Report Type: Spontaneous
  Country: FR (occurrence: FR)
  Receive Date: 20200127
  Receipt Date: 20200127
  Transmission Date: 20200409
  Serious: Yes (Hospitalization, Other)
  Sender: FDA-Public Use
  Company Number: FR-BRISTOL-MYERS SQUIBB COMPANY-BMS-2020-005375

PATIENT
  Age: 67 Year
  Sex: Female
  Weight: 85 kg

DRUGS (5)
  1. LIDOCAINE. [Suspect]
     Active Substance: LIDOCAINE
     Indication: ANAESTHESIA
     Dosage: 1 DOSAGE FORM
     Route: 062
     Dates: start: 20191224, end: 20191227
  2. NEFOPAM [NEFOPAM HYDROCHLORIDE] [Suspect]
     Active Substance: NEFOPAM HYDROCHLORIDE
     Indication: POSTOPERATIVE ANALGESIA
     Dosage: 1 DOSAGE FORM 8 HOURS
     Route: 065
     Dates: start: 20191209, end: 20191227
  3. PARACETAMOL [Suspect]
     Active Substance: ACETAMINOPHEN
     Indication: POSTOPERATIVE ANALGESIA
     Dosage: 3 GRAM DAILY
     Route: 048
     Dates: start: 20191218, end: 20191227
  4. CODEINE [Suspect]
     Active Substance: CODEINE
     Indication: POSTOPERATIVE ANALGESIA
     Route: 048
     Dates: start: 20191218, end: 20191227
  5. ELIQUIS [Suspect]
     Active Substance: APIXABAN
     Indication: THROMBOSIS PROPHYLAXIS
     Dosage: 2 DOSAGE FORM DAILY
     Route: 048
     Dates: start: 20191204, end: 20191226

REACTIONS (1)
  - Neutropenia [Recovered/Resolved]

NARRATIVE: CASE EVENT DATE: 20191226
